FAERS Safety Report 6410294-9 (Version None)
Quarter: 2009Q4

REPORT INFORMATION
  Report Type: 
  Country: None (occurrence: None)
  Receive Date: 20091022
  Receipt Date: 20091016
  Transmission Date: 20100525
  Serious: Yes (Hospitalization)
  Sender: FDA-Public Use
  Company Number: B0598728A

PATIENT
  Age: 32 Year
  Sex: Male
  Weight: 70 kg

DRUGS (5)
  1. PAXIL [Suspect]
     Indication: TENSION
     Dosage: 20MG PER DAY
     Route: 048
     Dates: start: 20090606, end: 20090824
  2. MEILAX [Suspect]
     Indication: TENSION
     Dosage: 1MG PER DAY
     Route: 048
     Dates: start: 20090606, end: 20090824
  3. CARTEOLOL HYDROCHLORIDE [Concomitant]
     Indication: PALPITATIONS
     Route: 048
  4. DEPAS [Concomitant]
     Route: 048
  5. LENDORMIN [Concomitant]
     Route: 048

REACTIONS (1)
  - ACTIVATION SYNDROME [None]
